FAERS Safety Report 10635893 (Version 1)
Quarter: 2014Q4

REPORT INFORMATION
  Report Type: Report from Study
  Country: US (occurrence: US)
  Receive Date: 20141205
  Receipt Date: 20141205
  Transmission Date: 20150529
  Serious: Yes (Hospitalization)
  Sender: FDA-Public Use
  Company Number: US-GILEAD-2014-0125353

PATIENT
  Sex: Male

DRUGS (2)
  1. SOFOSBUVIR [Suspect]
     Active Substance: SOFOSBUVIR
     Indication: HEPATITIS C
     Dosage: 2 DF, QD
     Route: 065
     Dates: start: 20141008
  2. OLYSIO [Suspect]
     Active Substance: SIMEPREVIR
     Indication: HEPATITIS C
     Dosage: 2 DF, QD
     Route: 048
     Dates: start: 20141008

REACTIONS (3)
  - Hypertension [Unknown]
  - Drug administration error [Unknown]
  - Off label use [Unknown]

NARRATIVE: CASE EVENT DATE: 20141008
